FAERS Safety Report 23666160 (Version 1)
Quarter: 2024Q1

REPORT INFORMATION
  Report Type: Spontaneous
  Country: FR (occurrence: FR)
  Receive Date: 20240324
  Receipt Date: 20240324
  Transmission Date: 20240410
  Serious: Yes (Other)
  Sender: FDA-Public Use
  Company Number: FR-PFIZER INC-202300305721

PATIENT
  Age: 77 Year
  Sex: Female

DRUGS (13)
  1. EPHEDRINE [Suspect]
     Active Substance: EPHEDRINE
     Indication: Hypoxia
     Dosage: 15 MILLIGRAM (TOTAL)
     Route: 042
  2. NOREPINEPHRINE [Suspect]
     Active Substance: NOREPINEPHRINE\NOREPINEPHRINE BITARTRATE
     Indication: Tachycardia
     Dosage: UNK (INCREASING DOSES UP TO 3 UG/KG/MIN)
     Route: 042
  3. NOREPINEPHRINE [Suspect]
     Active Substance: NOREPINEPHRINE\NOREPINEPHRINE BITARTRATE
     Indication: Hypotension
  4. ATROPINE [Suspect]
     Active Substance: ATROPINE\ATROPINE SULFATE
     Indication: Hypoxia
     Dosage: 1 MILLIGRAM
     Route: 042
  5. DOBUTAMINE HYDROCHLORIDE [Suspect]
     Active Substance: DOBUTAMINE HYDROCHLORIDE
     Indication: Product used for unknown indication
     Dosage: 7 MICROGRAM/KILOGRAM
     Route: 065
  6. AMIODARONE [Concomitant]
     Active Substance: AMIODARONE
     Indication: Acute myocardial infarction
     Dosage: 600 MILLIGRAM, ONCE A DAY (200 MG, 3X/DAY)
     Route: 065
  7. AMIODARONE [Concomitant]
     Active Substance: AMIODARONE
     Indication: Antiplatelet therapy
  8. ENOXAPARIN [Concomitant]
     Active Substance: ENOXAPARIN
     Indication: Antiplatelet therapy
     Dosage: 100 MILLIGRAM, ONCE A DAY (50 MG, 2X/DAY)
     Route: 065
  9. ENOXAPARIN [Concomitant]
     Active Substance: ENOXAPARIN
     Indication: Acute myocardial infarction
  10. ASPIRIN [Concomitant]
     Active Substance: ASPIRIN
     Indication: Antiplatelet therapy
     Dosage: 500 MILLIGRAM, ONCE A DAY
     Route: 065
  11. ASPIRIN [Concomitant]
     Active Substance: ASPIRIN
     Indication: Acute myocardial infarction
  12. PRAVASTATIN [Concomitant]
     Active Substance: PRAVASTATIN
     Indication: Acute myocardial infarction
     Dosage: UNK
     Route: 065
  13. PRAVASTATIN [Concomitant]
     Active Substance: PRAVASTATIN
     Indication: Antiplatelet therapy

REACTIONS (1)
  - Acquired left ventricle outflow tract obstruction [Recovered/Resolved]
